FAERS Safety Report 24074187 (Version 1)
Quarter: 2024Q3

REPORT INFORMATION
  Report Type: Spontaneous
  Country: ES (occurrence: ES)
  Receive Date: 20240710
  Receipt Date: 20240710
  Transmission Date: 20241016
  Serious: Yes (Hospitalization)
  Sender: PIERRE FABRE MEDICAMENT
  Company Number: None

PATIENT
  Age: 80 Year
  Sex: Male

DRUGS (8)
  1. PROPRANOLOL [Suspect]
     Active Substance: PROPRANOLOL HYDROCHLORIDE
     Indication: Cerebrovascular disorder
     Dosage: 40.0 MG C/24 H
     Route: 048
     Dates: start: 20130409, end: 20221230
  2. PROPRANOLOL [Suspect]
     Active Substance: PROPRANOLOL HYDROCHLORIDE
     Indication: Off label use
  3. POTASSIUM CITRATE [Concomitant]
     Active Substance: POTASSIUM CITRATE
     Indication: Product used for unknown indication
     Dosage: 1.0 COMP D-DECOCE, 100 TABLETS
     Route: 048
     Dates: start: 20120324
  4. CHOLECALCIFEROL [Concomitant]
     Active Substance: CHOLECALCIFEROL
     Indication: Vitamin D decreased
     Dosage: 25000.0 EVERY 30 DAYS (25,000 IU/2.5 ML) 4 BOTTLES OF 2.5 ML
     Route: 048
     Dates: start: 20190620
  5. ASPIRIN [Concomitant]
     Active Substance: ASPIRIN
     Indication: Product used for unknown indication
     Dosage: 100.0 MG DE, 30 TABLETS (PVC-ALUMINUM)
     Route: 048
     Dates: start: 20130410
  6. TAMSULOSIN HYDROCHLORIDE [Concomitant]
     Active Substance: TAMSULOSIN HYDROCHLORIDE
     Indication: Product used for unknown indication
     Dosage: 0.4 MG, D-DE, 30 TABLETS
     Route: 048
     Dates: start: 20120325
  7. ALPRAZOLAM CINFA [Concomitant]
     Indication: Insomnia
     Dosage: 0.25 MG DECO, 30 TABLETS
     Route: 048
     Dates: start: 20190620
  8. BRINTELLIX [Concomitant]
     Active Substance: VORTIOXETINE HYDROBROMIDE
     Indication: Depression
     Dosage: 10.0 MG DE, 28 TABLETS
     Route: 048
     Dates: start: 20220608

REACTIONS (4)
  - Bradycardia [Recovered/Resolved]
  - Product use issue [Unknown]
  - Product use in unapproved indication [Unknown]
  - Off label use [Unknown]

NARRATIVE: CASE EVENT DATE: 20221230
